FAERS Safety Report 13034682 (Version 1)
Quarter: 2016Q4

REPORT INFORMATION
  Report Type: Spontaneous
  Country: US (occurrence: US)
  Receive Date: 20161216
  Receipt Date: 20161216
  Transmission Date: 20170207
  Serious: No
  Sender: FDA-Public Use
  Company Number: US-BAUSCH-BL-2016-016868

PATIENT
  Age: 72 Year
  Sex: Female
  Weight: 88.53 kg

DRUGS (1)
  1. TIMOLOL GEL FORMING SOLUTION [Suspect]
     Active Substance: TIMOLOL
     Indication: GLAUCOMA
     Route: 047
     Dates: start: 201606

REACTIONS (3)
  - Erythema of eyelid [Recovering/Resolving]
  - Eyelid oedema [Recovering/Resolving]
  - Eye irritation [Recovering/Resolving]

NARRATIVE: CASE EVENT DATE: 201606
